FAERS Safety Report 18038674 (Version 6)
Quarter: 2022Q1

REPORT INFORMATION
  Report Type: Spontaneous
  Country: US (occurrence: US)
  Receive Date: 20200717
  Receipt Date: 20220303
  Transmission Date: 20220424
  Serious: No
  Sender: FDA-Public Use
  Company Number: US-PFIZER INC-2020274079

PATIENT
  Age: 49 Year
  Sex: Female
  Weight: 81.65 kg

DRUGS (2)
  1. LYRICA [Suspect]
     Active Substance: PREGABALIN
     Indication: Fibromyalgia
     Dosage: UNK
  2. LYRICA [Suspect]
     Active Substance: PREGABALIN
     Indication: Nerve injury
     Dosage: UNK (1-2 CAPSULES A DAY BY MOUTH SPACED THROUGHOUT EVERY 8, 10, 12 HOURS)
     Route: 048

REACTIONS (4)
  - Malaise [Unknown]
  - Gastric disorder [Unknown]
  - Withdrawal syndrome [Recovered/Resolved]
  - Memory impairment [Unknown]
